FAERS Safety Report 14124428 (Version 2)
Quarter: 2018Q1

REPORT INFORMATION
  Report Type: Spontaneous
  Country: US (occurrence: US)
  Receive Date: 20171025
  Receipt Date: 20180313
  Transmission Date: 20180508
  Serious: No
  Sender: FDA-Public Use
  Company Number: US-PFIZER INC-2017458948

PATIENT
  Age: 45 Year
  Sex: Female

DRUGS (5)
  1. SUTENT [Suspect]
     Active Substance: SUNITINIB MALATE
     Dosage: 37.5 MG, ALTERNATE DAY (EVERY OTHER DAY)
     Route: 048
     Dates: start: 201709, end: 201801
  2. LYRICA [Concomitant]
     Active Substance: PREGABALIN
     Dosage: 100 MG, UNK
  3. METHADONE HCL [Concomitant]
     Active Substance: METHADONE HYDROCHLORIDE
     Dosage: 10 MG, UNK
  4. OXYCODONE HYDROCHLORIDE. [Concomitant]
     Active Substance: OXYCODONE HYDROCHLORIDE
     Dosage: 30 MG, UNK
  5. SUTENT [Suspect]
     Active Substance: SUNITINIB MALATE
     Indication: RENAL CANCER
     Dosage: 50 MG, ALTERNATE DAY (EVERY OTHER DAY)
     Route: 048
     Dates: start: 20170905, end: 201709

REACTIONS (2)
  - Neoplasm progression [Recovered/Resolved]
  - Skin lesion [Not Recovered/Not Resolved]
